FAERS Safety Report 17193183 (Version 9)
Quarter: 2021Q3

REPORT INFORMATION
  Report Type: Report from Study
  Country: US (occurrence: US)
  Receive Date: 20191223
  Receipt Date: 20210915
  Transmission Date: 20211014
  Serious: No
  Sender: FDA-Public Use
  Company Number: NVSC2019US075862

PATIENT
  Sex: Male

DRUGS (3)
  1. ILARIS [Suspect]
     Active Substance: CANAKINUMAB
     Indication: STILL^S DISEASE
     Dosage: UNK UNK, QMO
     Route: 058
     Dates: start: 20191201
  2. ILARIS [Suspect]
     Active Substance: CANAKINUMAB
     Dosage: 300 MG, EVERY 8 WEEKS
     Route: 065
  3. ILARIS [Suspect]
     Active Substance: CANAKINUMAB
     Dosage: UNK
     Route: 065

REACTIONS (7)
  - Arthralgia [Unknown]
  - Neck pain [Unknown]
  - Rash [Not Recovered/Not Resolved]
  - Inappropriate schedule of product administration [Unknown]
  - Pain [Unknown]
  - Hot flush [Unknown]
  - Joint swelling [Unknown]
